FAERS Safety Report 20158095 (Version 1)
Quarter: 2021Q4

REPORT INFORMATION
  Report Type: Spontaneous
  Country: US (occurrence: US)
  Receive Date: 20211207
  Receipt Date: 20211207
  Transmission Date: 20220303
  Serious: No
  Sender: FDA-Public Use
  Company Number: US-SA-SAC20211201001420

PATIENT
  Age: 8 Year
  Sex: Female

DRUGS (3)
  1. DUPIXENT [Suspect]
     Active Substance: DUPILUMAB
     Indication: Dermatitis atopic
     Dosage: 300 MG, QM
     Route: 058
     Dates: start: 20210820
  2. CETIRIZINE [Concomitant]
     Active Substance: CETIRIZINE HYDROCHLORIDE
  3. EPIPEN JR [Concomitant]
     Active Substance: EPINEPHRINE

REACTIONS (2)
  - Dermatitis atopic [Unknown]
  - Product use issue [Unknown]

NARRATIVE: CASE EVENT DATE: 20210820
